FAERS Safety Report 13716852 (Version 1)
Quarter: 2017Q3

REPORT INFORMATION
  Report Type: Spontaneous
  Country: US (occurrence: US)
  Receive Date: 20170703
  Receipt Date: 20170703
  Transmission Date: 20171127
  Serious: Yes (Disabling, Other)
  Sender: FDA-Public Use
  Company Number: None

PATIENT
  Age: 63 Year
  Sex: Male
  Weight: 68.85 kg

DRUGS (3)
  1. FLOMAX [Concomitant]
     Active Substance: TAMSULOSIN HYDROCHLORIDE
  2. LUPRON [Suspect]
     Active Substance: LEUPROLIDE ACETATE
     Indication: DRUG THERAPY
     Dosage: 1 SHOT BY DR. EVERY 3 MONTHS?
     Route: 030
  3. DAILY VITAMINS [Concomitant]

REACTIONS (16)
  - Swelling [None]
  - Loss of libido [None]
  - Injection site pain [None]
  - Injection site swelling [None]
  - Dysuria [None]
  - Pollakiuria [None]
  - Headache [None]
  - Hot flush [None]
  - Fatigue [None]
  - Groin pain [None]
  - Back pain [None]
  - Chest discomfort [None]
  - Insomnia [None]
  - Micturition urgency [None]
  - Pain [None]
  - Skin discolouration [None]

NARRATIVE: CASE EVENT DATE: 20170404
